FAERS Safety Report 19238688 (Version 1)
Quarter: 2021Q2

REPORT INFORMATION
  Report Type: Report from Study
  Country: US (occurrence: US)
  Receive Date: 20210510
  Receipt Date: 20210510
  Transmission Date: 20210717
  Serious: Yes (Hospitalization, Other)
  Sender: FDA-Public Use
  Company Number: US-MYLANLABS-2021M1027075

PATIENT
  Sex: Female

DRUGS (7)
  1. RILUZOLE. [Suspect]
     Active Substance: RILUZOLE
     Indication: MYOCLONUS
     Dosage: 50 MILLIGRAM, QD
     Route: 065
  2. OXCARBAZEPINE. [Suspect]
     Active Substance: OXCARBAZEPINE
     Indication: MYOCLONUS
     Dosage: UNK
     Route: 065
  3. CLOBAZAM. [Suspect]
     Active Substance: CLOBAZAM
     Indication: MYOCLONUS
     Dosage: UNK
     Route: 065
  4. RILUZOLE. [Suspect]
     Active Substance: RILUZOLE
     Dosage: 75 MILLIGRAM, QD
     Route: 065
  5. LACOSAMIDE. [Suspect]
     Active Substance: LACOSAMIDE
     Indication: MYOCLONUS
     Dosage: UNK
     Route: 065
  6. PHENYTOIN. [Suspect]
     Active Substance: PHENYTOIN
     Indication: MYOCLONUS
     Dosage: UNK
     Route: 065
  7. LEVETIRACETAM. [Concomitant]
     Active Substance: LEVETIRACETAM
     Indication: MYOCLONUS
     Route: 065

REACTIONS (3)
  - Drug ineffective [Unknown]
  - Hypersomnia [Unknown]
  - Off label use [Unknown]
